FAERS Safety Report 21409316 (Version 2)
Quarter: 2023Q1

REPORT INFORMATION
  Report Type: Spontaneous
  Country: US (occurrence: US)
  Receive Date: 20221004
  Receipt Date: 20230130
  Transmission Date: 20230417
  Serious: Yes (Other)
  Sender: FDA-Public Use
  Company Number: US-PFIZER INC-PV202200073946

PATIENT
  Age: 44 Year

DRUGS (1)
  1. TOVIAZ [Suspect]
     Active Substance: FESOTERODINE FUMARATE
     Dosage: UNK

REACTIONS (6)
  - Paraplegia [Unknown]
  - Wheelchair user [Unknown]
  - Pain [Unknown]
  - Neuralgia [Unknown]
  - Amnesia [Unknown]
  - Urinary incontinence [Unknown]
